FAERS Safety Report 6103120-9 (Version None)
Quarter: 2009Q1

REPORT INFORMATION
  Report Type: 
  Country: None (occurrence: None)
  Receive Date: 20090227
  Receipt Date: 20090218
  Transmission Date: 20090719
  Serious: Yes (Other)
  Sender: FDA-Public Use
  Company Number: UKP09000042

PATIENT
  Age: 53 Year
  Sex: Male

DRUGS (3)
  1. ASACOL [Suspect]
     Indication: COLITIS ULCERATIVE
     Dosage: 2.4 G, 1/DAY, ORAL
     Route: 048
     Dates: start: 20090125, end: 20090125
  2. AMLODIPINE [Concomitant]
  3. PREDNISONE TAB [Concomitant]

REACTIONS (8)
  - ABDOMINAL PAIN [None]
  - BACK PAIN [None]
  - DIARRHOEA [None]
  - DIZZINESS [None]
  - DYSPNOEA [None]
  - HEADACHE [None]
  - HYPERSENSITIVITY [None]
  - TREMOR [None]
